FAERS Safety Report 10446645 (Version 1)
Quarter: 2014Q3

REPORT INFORMATION
  Report Type: Spontaneous
  Country: US (occurrence: None)
  Receive Date: 20140910
  Receipt Date: 20140910
  Transmission Date: 20150326
  Serious: No
  Sender: FDA-Public Use
  Company Number: None

PATIENT
  Age: 57 Year
  Sex: Female
  Weight: 53.07 kg

DRUGS (1)
  1. LEVOFLOXACIN 500 MG AUROBINDO [Suspect]
     Active Substance: LEVOFLOXACIN
     Indication: COUGH
     Dosage: 1 PILL ONCE DAILY TAKEN BY MOUTH
     Route: 048
     Dates: start: 20140306, end: 20140307

REACTIONS (9)
  - Arthralgia [None]
  - Musculoskeletal chest pain [None]
  - Tendonitis [None]
  - Musculoskeletal stiffness [None]
  - Musculoskeletal pain [None]
  - Wheezing [None]
  - Back pain [None]
  - Inflammation [None]
  - Pain in extremity [None]

NARRATIVE: CASE EVENT DATE: 20140307
